FAERS Safety Report 5093328-6 (Version None)
Quarter: 2006Q3

REPORT INFORMATION
  Report Type: 
  Country: None (occurrence: None)
  Receive Date: 20060828
  Receipt Date: 20060817
  Transmission Date: 20061208
  Serious: Yes (Other)
  Sender: FDA-Public Use
  Company Number: 2006094256

PATIENT
  Age: 81 Year
  Sex: Male

DRUGS (1)
  1. SULPERAZON (SULBACTAM, CEFOPERAZONE) [Suspect]
     Indication: DRUG USE FOR UNKNOWN INDICATION
     Dosage: 3 GRAM (1.5 GRAM, 2 IN 1 D)
     Dates: start: 20060720, end: 20060729

REACTIONS (2)
  - JAUNDICE CHOLESTATIC [None]
  - PNEUMONIA [None]
